FAERS Safety Report 7455658-X (Version None)
Quarter: 2011Q2

REPORT INFORMATION
  Report Type: 
  Country: None (occurrence: None)
  Receive Date: 20110503
  Receipt Date: 20110427
  Transmission Date: 20111010
  Serious: Yes (Death, Other)
  Sender: FDA-Public Use
  Company Number: US-GENZYME-CAMP-1001595

PATIENT
  Age: 64 Year
  Sex: Male

DRUGS (5)
  1. CAMPATH [Suspect]
     Dosage: 10 MG, ONCE
     Route: 058
  2. CAMPATH [Suspect]
     Dosage: 30 MG, FOR 22 DOSES
     Route: 058
  3. CYCLOPHOSPHAMIDE [Suspect]
     Indication: T-CELL PROLYMPHOCYTIC LEUKAEMIA
     Dosage: 2X/W FOR 12 WEEKS
     Route: 065
  4. CAMPATH [Suspect]
     Indication: T-CELL PROLYMPHOCYTIC LEUKAEMIA
     Dosage: 3 MG, ONCE
     Route: 058
  5. PENTOSTATIN [Suspect]
     Indication: T-CELL PROLYMPHOCYTIC LEUKAEMIA
     Dosage: 2X/W, FOR 12 WEEKS
     Route: 065

REACTIONS (8)
  - DIFFUSE LARGE B-CELL LYMPHOMA RECURRENT [None]
  - CHOLECYSTITIS ACUTE [None]
  - DIFFUSE LARGE B-CELL LYMPHOMA [None]
  - LUNG DISORDER [None]
  - RENAL FAILURE [None]
  - SEPSIS [None]
  - SUPRAVENTRICULAR TACHYCARDIA [None]
  - LYMPHADENOPATHY [None]
